FAERS Safety Report 4616323-7 (Version None)
Quarter: 2005Q1

REPORT INFORMATION
  Report Type: 
  Country: None (occurrence: None)
  Receive Date: 20050321
  Receipt Date: 20050310
  Transmission Date: 20050727
  Serious: Yes (Hospitalization)
  Sender: FDA-Public Use
  Company Number: 2005UW01947

PATIENT
  Age: 12 Year
  Sex: Male
  Weight: 50.8029 kg

DRUGS (5)
  1. SEROQUEL [Suspect]
     Indication: BIPOLAR DISORDER
     Dosage: 400 MG QD PO
     Route: 048
     Dates: start: 20050121, end: 20050128
  2. RISPERIDONE [Concomitant]
  3. CLONIDINE [Concomitant]
  4. ARIPIPRAZOLE [Concomitant]
  5. DIVALPROEX SODIUM [Concomitant]

REACTIONS (7)
  - AGGRESSION [None]
  - AGITATION [None]
  - BIPOLAR I DISORDER [None]
  - CONDITION AGGRAVATED [None]
  - HOSTILITY [None]
  - SCREAMING [None]
  - SUICIDAL IDEATION [None]
